FAERS Safety Report 14583554 (Version 2)
Quarter: 2018Q2

REPORT INFORMATION
  Report Type: Spontaneous
  Country: US (occurrence: US)
  Receive Date: 20180228
  Receipt Date: 20180517
  Transmission Date: 20180711
  Serious: No
  Sender: FDA-Public Use
  Company Number: PHEH2018US008143

PATIENT
  Sex: Female

DRUGS (2)
  1. GLEEVEC [Suspect]
     Active Substance: IMATINIB MESYLATE
     Indication: SOFT TISSUE NEOPLASM
     Dosage: 200 MG, TID
     Route: 048
     Dates: start: 20151130
  2. GLEEVEC [Suspect]
     Active Substance: IMATINIB MESYLATE
     Indication: GASTROINTESTINAL STROMAL TUMOUR
     Dosage: 200 MG, TID
     Route: 048
     Dates: start: 20151201

REACTIONS (3)
  - Thyroid hormones increased [Unknown]
  - Fluid retention [Unknown]
  - Blood glucose increased [Unknown]
